FAERS Safety Report 6438026-9 (Version None)
Quarter: 2009Q4

REPORT INFORMATION
  Report Type: 
  Country: None (occurrence: None)
  Receive Date: 20091112
  Receipt Date: 20091106
  Transmission Date: 20100525
  Serious: Yes (Hospitalization)
  Sender: FDA-Public Use
  Company Number: US-MERCK-0911USA01630

PATIENT
  Age: 48 Year
  Sex: Female

DRUGS (1)
  1. FOSAMAX PLUS D [Suspect]
     Route: 048
     Dates: end: 20080101

REACTIONS (3)
  - FEMUR FRACTURE [None]
  - FOOT FRACTURE [None]
  - LOWER LIMB FRACTURE [None]
